FAERS Safety Report 4354528-3 (Version None)
Quarter: 2004Q2

REPORT INFORMATION
  Report Type: 
  Country: None (occurrence: None)
  Receive Date: 20040503
  Receipt Date: 20040422
  Transmission Date: 20050107
  Serious: Yes (Death)
  Sender: FDA-Public Use
  Company Number: US-JNJFOC-20040405022

PATIENT
  Age: 86 Year
  Sex: Female

DRUGS (2)
  1. REMINYL [Suspect]
     Indication: DEMENTIA ALZHEIMER'S TYPE
     Dosage: 4 MG, 2 IN 1 DAY, ORAL; 8 MG, 2 IN 1 DAY, ORAL; 16 MG, 2 IN 1 DAY, ORAL
     Route: 048
     Dates: end: 20040318
  2. REMINYL [Suspect]
     Indication: DEMENTIA ALZHEIMER'S TYPE
     Dosage: 4 MG, 2 IN 1 DAY, ORAL; 8 MG, 2 IN 1 DAY, ORAL; 16 MG, 2 IN 1 DAY, ORAL
     Route: 048
     Dates: start: 20010101

REACTIONS (1)
  - CARDIAC FAILURE CONGESTIVE [None]
